FAERS Safety Report 17401681 (Version 1)
Quarter: 2020Q1

REPORT INFORMATION
  Report Type: Spontaneous
  Country: US (occurrence: US)
  Receive Date: 20200211
  Receipt Date: 20200211
  Transmission Date: 20200409
  Serious: No
  Sender: FDA-Public Use
  Company Number: US-ALLERGAN-1908440US

PATIENT
  Sex: Female

DRUGS (2)
  1. FLUOROMETHOLONE, 0.1% [Suspect]
     Active Substance: FLUOROMETHOLONE
     Indication: EYE INFECTION
     Dosage: UNK UNK, QID
     Route: 047
  2. FLUOROMETHOLONE, 0.1% [Suspect]
     Active Substance: FLUOROMETHOLONE
     Dosage: UNK, BID
     Route: 047

REACTIONS (2)
  - Product packaging quantity issue [Unknown]
  - Eye infection [Unknown]
